FAERS Safety Report 10050403 (Version 1)
Quarter: 2014Q2

REPORT INFORMATION
  Report Type: Spontaneous
  Country: BE (occurrence: BE)
  Receive Date: 20140401
  Receipt Date: 20140401
  Transmission Date: 20141212
  Serious: Yes (Hospitalization)
  Sender: FDA-Public Use
  Company Number: BE-DSJP-DSE-2014-102569

PATIENT
  Sex: 0

DRUGS (2)
  1. OLMETEC 40 MG [Suspect]
     Indication: ACCIDENTAL EXPOSURE TO PRODUCT BY CHILD
     Dosage: 40 MG, QD
     Route: 048
     Dates: start: 20140116, end: 20140116
  2. OMEPRAZOLE [Concomitant]
     Indication: GASTROOESOPHAGEAL REFLUX DISEASE
     Dosage: 1 MG/KG, QD
     Route: 048
     Dates: start: 20111206

REACTIONS (2)
  - Poisoning [Recovered/Resolved]
  - Accidental exposure to product by child [Recovered/Resolved]
